FAERS Safety Report 10552807 (Version 1)
Quarter: 2014Q4

REPORT INFORMATION
  Report Type: Spontaneous
  Country: US (occurrence: US)
  Receive Date: 20141029
  Receipt Date: 20141029
  Transmission Date: 20150529
  Serious: No
  Sender: FDA-Public Use
  Company Number: US-MYLANLABS-2013S1021106

PATIENT
  Age: 60 Year
  Sex: Female

DRUGS (4)
  1. RISPERIDONE TABLETS, USP [Suspect]
     Active Substance: RISPERIDONE
     Indication: OFF LABEL USE
     Dosage: .25 MG,AM
     Route: 048
     Dates: start: 20130912
  2. RISPERIDONE TABLETS, USP [Suspect]
     Active Substance: RISPERIDONE
     Indication: INSOMNIA
     Dosage: .25 MG,AM
     Route: 048
     Dates: start: 20130912
  3. RISPERIDONE TABLETS, USP [Suspect]
     Active Substance: RISPERIDONE
     Indication: INSOMNIA
     Dosage: .5 MG,HS
     Route: 048
     Dates: start: 20130912
  4. RISPERIDONE TABLETS, USP [Suspect]
     Active Substance: RISPERIDONE
     Indication: OFF LABEL USE
     Dosage: .5 MG,HS
     Route: 048
     Dates: start: 20130912

REACTIONS (1)
  - Joint swelling [Not Recovered/Not Resolved]

NARRATIVE: CASE EVENT DATE: 20130918
